FAERS Safety Report 9961387 (Version 6)
Quarter: 2014Q3

REPORT INFORMATION
  Report Type: Spontaneous
  Country: US (occurrence: US)
  Receive Date: 20140305
  Receipt Date: 20140930
  Transmission Date: 20150326
  Serious: Yes (Hospitalization)
  Sender: FDA-Public Use
  Company Number: US-BAYER-2014-031603

PATIENT
  Age: 29 Year
  Sex: Female
  Weight: 77.1 kg

DRUGS (1)
  1. MIRENA [Suspect]
     Active Substance: LEVONORGESTREL
     Indication: CONTRACEPTION
     Dosage: 20 MCG/24HR, CONT
     Route: 015
     Dates: start: 20111006, end: 20130116

REACTIONS (10)
  - Back pain [None]
  - Device difficult to use [None]
  - Injury [None]
  - Scar [None]
  - Uterine perforation [None]
  - Device dislocation [None]
  - Flank pain [None]
  - Pregnancy with contraceptive device [None]
  - Drug ineffective [None]
  - Emotional distress [None]

NARRATIVE: CASE EVENT DATE: 20120301
